FAERS Safety Report 5601992-5 (Version None)
Quarter: 2008Q1

REPORT INFORMATION
  Report Type: 
  Country: None (occurrence: None)
  Receive Date: 20080118
  Receipt Date: 20080107
  Transmission Date: 20080703
  Serious: Yes (Other)
  Sender: FDA-Public Use
  Company Number: CHNY2008AU00480

PATIENT
  Sex: Female

DRUGS (1)
  1. BENEFIBER W/ WHEAT DEXTRIN (NCH)(WHEAT DEXTRIN) UNKNOWN [Suspect]
     Indication: HYPOTENSION
     Dosage: 15G DAILY, ORAL
     Route: 048

REACTIONS (6)
  - ARTHRITIS [None]
  - CONDITION AGGRAVATED [None]
  - HYPOTENSION [None]
  - MIGRAINE [None]
  - OFF LABEL USE [None]
  - OVERDOSE [None]
